FAERS Safety Report 6433312-0 (Version None)
Quarter: 2009Q4

REPORT INFORMATION
  Report Type: 
  Country: None (occurrence: None)
  Receive Date: 20091109
  Receipt Date: 20091026
  Transmission Date: 20100525
  Serious: Yes (Other)
  Sender: FDA-Public Use
  Company Number: PHHY2009JP45409

PATIENT
  Age: 62 Year
  Sex: Male

DRUGS (5)
  1. GLEEVEC [Suspect]
     Indication: CHRONIC MYELOID LEUKAEMIA
     Dosage: 400 MG DAILY
     Route: 048
  2. GLEEVEC [Suspect]
     Dosage: 300 MG DAILY
     Route: 048
  3. GLEEVEC [Suspect]
     Dosage: 400 MG DAILY
     Route: 048
  4. GLEEVEC [Suspect]
     Dosage: 600 MG DAILY
     Route: 048
  5. GLEEVEC [Suspect]
     Dosage: 800 MG DAILY
     Route: 048

REACTIONS (7)
  - CARDIOMEGALY [None]
  - CHROMOSOME ANALYSIS ABNORMAL [None]
  - DRUG RESISTANCE [None]
  - OEDEMA [None]
  - PLEURAL EFFUSION [None]
  - PYREXIA [None]
  - RASH ERYTHEMATOUS [None]
